FAERS Safety Report 4622693-6 (Version None)
Quarter: 2005Q1

REPORT INFORMATION
  Report Type: 
  Country: None (occurrence: None)
  Receive Date: 20050329
  Receipt Date: 20050329
  Transmission Date: 20050727
  Serious: No
  Sender: FDA-Public Use
  Company Number: None

PATIENT
  Age: 40 Year
  Sex: Male
  Weight: 77.1115 kg

DRUGS (1)
  1. CYMBALTA [Suspect]
     Indication: FIBROMYALGIA
     Dosage: ONCE DAILY   ORAL
     Route: 048
     Dates: start: 20050223, end: 20050421

REACTIONS (9)
  - BLISTER [None]
  - DIZZINESS [None]
  - FATIGUE [None]
  - FEELING ABNORMAL [None]
  - INSOMNIA [None]
  - MICTURITION DISORDER [None]
  - NAUSEA [None]
  - RASH [None]
  - SKIN DISCOLOURATION [None]
